FAERS Safety Report 7452160-6 (Version None)
Quarter: 2011Q2

REPORT INFORMATION
  Report Type: 
  Country: None (occurrence: None)
  Receive Date: 20110502
  Receipt Date: 20110427
  Transmission Date: 20111010
  Serious: Yes (Other)
  Sender: FDA-Public Use
  Company Number: US-PFIZER INC-2011091892

PATIENT
  Sex: Male

DRUGS (2)
  1. CHILDREN'S MOTRIN [Concomitant]
     Indication: COUGH
     Dosage: UNK
     Route: 048
     Dates: start: 20110426
  2. ROBITUSSIN CHILDREN'S COUGH LONG ACTING [Suspect]
     Indication: COUGH
     Dosage: UNK
     Route: 048
     Dates: start: 20110426

REACTIONS (2)
  - RASH GENERALISED [None]
  - PRURITUS [None]
